FAERS Safety Report 13230321 (Version 1)
Quarter: 2017Q1

REPORT INFORMATION
  Report Type: Spontaneous
  Country: US (occurrence: US)
  Receive Date: 20170214
  Receipt Date: 20170214
  Transmission Date: 20170428
  Serious: Yes (Disabling)
  Sender: FDA-Public Use
  Company Number: None

PATIENT
  Age: 75 Year
  Sex: Female
  Weight: 49.95 kg

DRUGS (4)
  1. CALCIUM + D [Concomitant]
     Active Substance: CALCIUM\VITAMIN D
  2. LEVOTHYROXINE. [Concomitant]
     Active Substance: LEVOTHYROXINE
  3. PROLIA [Suspect]
     Active Substance: DENOSUMAB
     Indication: OSTEOPOROSIS
     Route: 058
     Dates: start: 20161025, end: 20161025
  4. PRESERVISION [Concomitant]
     Active Substance: MINERALS\VITAMINS

REACTIONS (6)
  - Rash generalised [None]
  - Haemorrhage [None]
  - Rash pruritic [None]
  - Feeling abnormal [None]
  - Bedridden [None]
  - Rash erythematous [None]

NARRATIVE: CASE EVENT DATE: 20161025
